FAERS Safety Report 7861331-6 (Version None)
Quarter: 2011Q4

REPORT INFORMATION
  Report Type: 
  Country: None (occurrence: None)
  Receive Date: 20111027
  Receipt Date: 20111023
  Transmission Date: 20120403
  Serious: Yes (Death)
  Sender: FDA-Public Use
  Company Number: IT-JNJFOC-20111009965

PATIENT
  Sex: Male

DRUGS (4)
  1. RITONAVIR [Concomitant]
     Indication: HIV INFECTION
     Route: 065
  2. COTRIM [Concomitant]
     Indication: ILL-DEFINED DISORDER
     Route: 065
  3. DARUNAVIR ETHANOLATE [Suspect]
     Indication: HIV INFECTION
     Route: 065
  4. TRUVADA [Concomitant]
     Indication: HIV INFECTION
     Route: 065

REACTIONS (2)
  - RESPIRATORY FAILURE [None]
  - PNEUMOCYSTIS JIROVECI INFECTION [None]
